FAERS Safety Report 24312181 (Version 1)
Quarter: 2024Q3

REPORT INFORMATION
  Report Type: Spontaneous
  Country: CN (occurrence: CN)
  Receive Date: 20240912
  Receipt Date: 20240912
  Transmission Date: 20241017
  Serious: Yes (Life-Threatening)
  Sender: BAYER
  Company Number: CN-BAYER-2024A130294

PATIENT
  Age: 51 Year
  Sex: Female
  Weight: 62 kg

DRUGS (2)
  1. GLUCOBAY [Interacting]
     Active Substance: ACARBOSE
     Indication: Diabetes mellitus
     Dosage: 1 DF, TID
     Route: 048
     Dates: end: 20240615
  2. METFORMIN HYDROCHLORIDE [Interacting]
     Active Substance: METFORMIN HYDROCHLORIDE
     Indication: Diabetes mellitus
     Dosage: 1 DF, TID
     Route: 048
     Dates: end: 20240615

REACTIONS (6)
  - Hypoglycaemia [Recovering/Resolving]
  - Chills [Recovering/Resolving]
  - Cold sweat [Recovering/Resolving]
  - Dizziness [Recovering/Resolving]
  - Asthenia [Recovering/Resolving]
  - Bedridden [Recovering/Resolving]

NARRATIVE: CASE EVENT DATE: 20240615
